FAERS Safety Report 9742716 (Version 1)
Quarter: 2013Q4

REPORT INFORMATION
  Report Type: Spontaneous
  Country: US (occurrence: US)
  Receive Date: 20131210
  Receipt Date: 20131210
  Transmission Date: 20140711
  Serious: No
  Sender: FDA-Public Use
  Company Number: US-GILEAD-2009-0025754

PATIENT
  Sex: Female
  Weight: 108.86 kg

DRUGS (13)
  1. LETAIRIS [Suspect]
     Indication: PULMONARY ARTERIAL HYPERTENSION
     Route: 048
     Dates: start: 20090515
  2. OXYGEN [Concomitant]
  3. LASIX [Concomitant]
  4. ALBUTEROL [Concomitant]
  5. PROAIR HFA [Concomitant]
  6. KLOR-CON [Concomitant]
  7. TYLENOL [Concomitant]
  8. LIPITOR [Concomitant]
  9. MOEXIPRIL HCL [Concomitant]
  10. ADVAIR [Concomitant]
  11. ASPIRIN [Concomitant]
  12. DYAZIDE [Concomitant]
  13. IBUPROFEN [Concomitant]

REACTIONS (2)
  - Sinus headache [Unknown]
  - Eye pain [Unknown]
